FAERS Safety Report 21022475 (Version 1)
Quarter: 2022Q2

REPORT INFORMATION
  Report Type: Spontaneous
  Country: US (occurrence: US)
  Receive Date: 20220629
  Receipt Date: 20220629
  Transmission Date: 20220721
  Serious: No
  Sender: FDA-Public Use
  Company Number: US-MAYNE PHARMA-2022MYN000121

PATIENT
  Sex: Female

DRUGS (2)
  1. DOFETILIDE [Suspect]
     Active Substance: DOFETILIDE
     Indication: Atrial fibrillation
     Dosage: 125 MG, BID
     Route: 048
     Dates: start: 20220420
  2. DOFETILIDE [Suspect]
     Active Substance: DOFETILIDE
     Indication: Atrial flutter

REACTIONS (1)
  - Vision blurred [Not Recovered/Not Resolved]
